FAERS Safety Report 8021070-8 (Version None)
Quarter: 2011Q4

REPORT INFORMATION
  Report Type: 
  Country: None (occurrence: None)
  Receive Date: 20111228
  Receipt Date: 20111213
  Transmission Date: 20120403
  Serious: Yes (Life-Threatening)
  Sender: FDA-Public Use
  Company Number: CA-2011-3461

PATIENT
  Age: 59 Year
  Sex: Male

DRUGS (6)
  1. MAGNESIUM [Concomitant]
  2. CISPLATIN [Suspect]
     Indication: NON-SMALL CELL LUNG CANCER
     Dosage: 80 MG/M2 IV
     Route: 042
     Dates: start: 20110914
  3. GLAXAL BASE [Concomitant]
  4. VINORELBINE [Suspect]
     Indication: NON-SMALL CELL LUNG CANCER
     Dosage: 25 MG/M2 IV
     Route: 042
     Dates: start: 20110914, end: 20111130
  5. ERBITUX [Suspect]
     Indication: NON-SMALL CELL LUNG CANCER
     Dosage: 400 MG/M2 IV
     Route: 042
     Dates: start: 20110914, end: 20111130
  6. ERBITUX [Suspect]
     Indication: NON-SMALL CELL LUNG CANCER
     Dosage: 80 MG/M2 IV
     Route: 042
     Dates: start: 20110914, end: 20111130

REACTIONS (2)
  - DIVERTICULAR PERFORATION [None]
  - INFECTIOUS PERITONITIS [None]
